FAERS Safety Report 9500681 (Version 5)
Quarter: 2014Q1

REPORT INFORMATION
  Report Type: Spontaneous
  Country: US (occurrence: US)
  Receive Date: 20130905
  Receipt Date: 20140115
  Transmission Date: 20141002
  Serious: Yes (Death, Other)
  Sender: FDA-Public Use
  Company Number: US-PFIZER INC-2013252221

PATIENT
  Age: 59 Year
  Sex: Female

DRUGS (14)
  1. XELJANZ [Suspect]
     Indication: RHEUMATOID ARTHRITIS
     Dosage: 5 MG, 2X/DAY
     Route: 048
     Dates: start: 20130429
  2. VICODIN [Concomitant]
     Indication: PAIN
     Dosage: 6 PER DAY
  3. TYLENOL [Concomitant]
     Indication: PAIN
     Dosage: UNK
  4. PLAQUENIL [Concomitant]
     Dosage: 200 MG, 2X/DAY
  5. PREDNISONE [Concomitant]
     Dosage: 7.5 MG, 1X/DAY
  6. PREDNISONE [Concomitant]
     Dosage: 10 MG, 1X/DAY
  7. FLEXERIL [Concomitant]
     Dosage: 10 MG, 2X/DAY
  8. IMURAN [Concomitant]
     Dosage: 50 MG, 1X/DAY (AT BED TIME)
  9. IMURAN [Concomitant]
     Dosage: 100 MG, 1X/DAY (AT BED TIME)
  10. RIVAROXABAN [Concomitant]
     Dosage: UNK
  11. REVATIO [Concomitant]
     Dosage: UNK
  12. LASIX [Concomitant]
     Dosage: UNK
  13. COUMADINE [Concomitant]
     Dosage: UNK
  14. EFEXOR XR [Concomitant]
     Indication: DYSPHORIA
     Dosage: 225 MG, 1X/DAY

REACTIONS (1)
  - Death [Fatal]
